FAERS Safety Report 6175144-7 (Version None)
Quarter: 2009Q2

REPORT INFORMATION
  Report Type: 
  Country: None (occurrence: None)
  Receive Date: 20090430
  Receipt Date: 20090108
  Transmission Date: 20091009
  Serious: No
  Sender: FDA-Public Use
  Company Number: US-ASTRAZENECA-2009UW00699

PATIENT
  Age: 46 Year
  Sex: Male

DRUGS (5)
  1. NEXIUM [Suspect]
     Indication: EROSIVE OESOPHAGITIS
     Route: 048
     Dates: start: 20081225
  2. LISINOPRIL [Concomitant]
     Dosage: 20 MG
     Dates: end: 20081001
  3. LISINOPRIL [Concomitant]
     Dosage: 10 MG
     Dates: start: 20081001
  4. CYCLOBENZAPRINE [Concomitant]
  5. XANAX [Concomitant]

REACTIONS (7)
  - ALCOHOL WITHDRAWAL SYNDROME [None]
  - CONSTIPATION [None]
  - DRY MOUTH [None]
  - FAECES DISCOLOURED [None]
  - FUNGAL INFECTION [None]
  - LIP SWELLING [None]
  - TONGUE DISORDER [None]
